FAERS Safety Report 19145487 (Version 4)
Quarter: 2022Q2

REPORT INFORMATION
  Report Type: Spontaneous
  Country: IN (occurrence: IN)
  Receive Date: 20210416
  Receipt Date: 20220425
  Transmission Date: 20220721
  Serious: Yes (Other)
  Sender: FDA-Public Use
  Company Number: IN-PFIZER INC-2021366878

PATIENT
  Age: 67 Year
  Sex: Female

DRUGS (5)
  1. PALBOCICLIB [Suspect]
     Active Substance: PALBOCICLIB
     Indication: Breast cancer metastatic
     Dosage: 125 MG, CYCLIC ((ONCE A DAY, D1-X (21 DAYS) (X 1 MONTH))
     Route: 048
     Dates: start: 20200309
  2. FULVESTRANT [Concomitant]
     Active Substance: FULVESTRANT
     Dosage: 25 MG, MONTHLY
  3. ZOLEDRONIC ACID [Concomitant]
     Active Substance: ZOLEDRONIC ACID
     Dosage: 4 MG, MONTHLY ((100ML NS) IN 30MIN)
  4. ULTRACET [Concomitant]
     Active Substance: ACETAMINOPHEN\TRAMADOL HYDROCHLORIDE
     Dosage: UNK, 2X/DAY
  5. LETROZOLE [Concomitant]
     Active Substance: LETROZOLE
     Dosage: 2.5MG 1-X 30DAYS

REACTIONS (3)
  - Coma [Unknown]
  - Heart rate increased [Unknown]
  - Pelvic pain [Unknown]

NARRATIVE: CASE EVENT DATE: 20220301
